FAERS Safety Report 4987494-8 (Version None)
Quarter: 2006Q2

REPORT INFORMATION
  Report Type: 
  Country: None (occurrence: None)
  Receive Date: 20060424
  Receipt Date: 20060404
  Transmission Date: 20061013
  Serious: Yes (Other)
  Sender: FDA-Public Use
  Company Number: US200604001248

PATIENT
  Age: 45 Year
  Sex: Female

DRUGS (1)
  1. HUMATROPE [Suspect]
     Dosage: 0.2  MG
     Dates: start: 20060101, end: 20060101

REACTIONS (1)
  - BREAST CANCER FEMALE [None]
